FAERS Safety Report 11696195 (Version 1)
Quarter: 2015Q4

REPORT INFORMATION
  Report Type: Spontaneous
  Country: US (occurrence: US)
  Receive Date: 20151104
  Receipt Date: 20151104
  Transmission Date: 20160304
  Serious: No
  Sender: FDA-Public Use
  Company Number: US-BAYER-2015-460158

PATIENT
  Age: 64 Year
  Sex: Female
  Weight: 80.73 kg

DRUGS (1)
  1. ALEVE [Suspect]
     Active Substance: NAPROXEN SODIUM
     Indication: ANALGESIC THERAPY
     Dosage: 1 DF, PRN
     Route: 048

REACTIONS (3)
  - Nervousness [Unknown]
  - Chills [Unknown]
  - Drug ineffective [None]

NARRATIVE: CASE EVENT DATE: 20151029
